FAERS Safety Report 7176501-2 (Version None)
Quarter: 2010Q4

REPORT INFORMATION
  Report Type: 
  Country: None (occurrence: None)
  Receive Date: 20101220
  Receipt Date: 20101217
  Transmission Date: 20110411
  Serious: Yes (Death)
  Sender: FDA-Public Use
  Company Number: DE-PFIZER INC-2010174510

PATIENT
  Age: 87 Year
  Sex: Female

DRUGS (6)
  1. UNACID [Suspect]
     Indication: PNEUMONIA
     Dosage: UNK
     Dates: start: 20090101
  2. RISPERDAL [Concomitant]
     Dosage: 1 MG, UNK
     Route: 048
     Dates: start: 20090116, end: 20090119
  3. MADOPAR [Concomitant]
     Dosage: 187.5 MG, UNK
     Route: 048
     Dates: end: 20090125
  4. BISOPROLOL [Concomitant]
     Dosage: 5 MG, UNK
     Route: 048
     Dates: end: 20090125
  5. HYDROCHLOROTHIAZIDE [Concomitant]
     Indication: DIURETIC THERAPY
     Dosage: 25 MG, UNK
     Route: 048
     Dates: end: 20090125
  6. LISINOPRIL [Concomitant]
     Dosage: 10 MG, UNK
     Route: 048
     Dates: end: 20090125

REACTIONS (3)
  - DRUG INEFFECTIVE [None]
  - GENERAL PHYSICAL HEALTH DETERIORATION [None]
  - PNEUMONIA [None]
